FAERS Safety Report 7504633-5 (Version None)
Quarter: 2011Q2

REPORT INFORMATION
  Report Type: 
  Country: None (occurrence: None)
  Receive Date: 20110525
  Receipt Date: 20110316
  Transmission Date: 20111010
  Serious: No
  Sender: FDA-Public Use
  Company Number: US-AMGEN-USASP2011014560

PATIENT
  Age: 89 Year
  Sex: Male

DRUGS (2)
  1. NPLATE [Suspect]
     Indication: PRODUCT USED FOR UNKNOWN INDICATION
  2. NPLATE [Suspect]

REACTIONS (2)
  - RASH ERYTHEMATOUS [None]
  - PRURITUS GENERALISED [None]
